FAERS Safety Report 24004845 (Version 4)
Quarter: 2024Q3

REPORT INFORMATION
  Report Type: Spontaneous
  Country: RO (occurrence: RO)
  Receive Date: 20240624
  Receipt Date: 20240820
  Transmission Date: 20241016
  Serious: No
  Sender: PFIZER
  Company Number: RO-PFIZER INC-PV202400078553

PATIENT
  Age: 12 Year
  Sex: Male
  Weight: 58 kg

DRUGS (4)
  1. GENOTROPIN [Suspect]
     Active Substance: SOMATROPIN
     Indication: Prader-Willi syndrome
     Dosage: 0.5 MG, DAILY
     Route: 058
     Dates: start: 2018
  2. SYMBICORT [Concomitant]
     Active Substance: BUDESONIDE\FORMOTEROL FUMARATE DIHYDRATE
     Indication: Asthma
     Dosage: 1 DF, AS NEEDED
  3. ALBUTEROL SULFATE [Concomitant]
     Active Substance: ALBUTEROL SULFATE
     Indication: Asthma
     Dosage: 1 DF, AS NEEDED
  4. ACETYLCYSTEINE [Concomitant]
     Active Substance: ACETYLCYSTEINE
     Dosage: UNK

REACTIONS (4)
  - Drug dose omission by device [Unknown]
  - Device information output issue [Unknown]
  - Device delivery system issue [Unknown]
  - Expired device used [Unknown]

NARRATIVE: CASE EVENT DATE: 20240601
